FAERS Safety Report 17222774 (Version 1)
Quarter: 2020Q1

REPORT INFORMATION
  Report Type: Spontaneous
  Country: US (occurrence: US)
  Receive Date: 20200102
  Receipt Date: 20200102
  Transmission Date: 20200409
  Serious: Yes (Death, Life-Threatening, Other)
  Sender: FDA-Public Use
  Company Number: US-AMGEN-USASP2019215447

PATIENT

DRUGS (8)
  1. CYCLOPHOSPHAMIDE. [Suspect]
     Active Substance: CYCLOPHOSPHAMIDE
     Indication: CHRONIC LYMPHOCYTIC LEUKAEMIA
     Dosage: 600 MILLIGRAM/SQ. METER, Q3WK
     Route: 042
  2. ALEMTUZUMAB [Suspect]
     Active Substance: ALEMTUZUMAB
     Indication: CHRONIC LYMPHOCYTIC LEUKAEMIA
     Dosage: 30 MILLIGRAM, 3 TIMES/WK
     Route: 058
  3. NEUPOGEN [Suspect]
     Active Substance: FILGRASTIM
     Indication: PRODUCT USED FOR UNKNOWN INDICATION
     Dosage: UNK UNK, QD (FOR 10 CONSECUTIVE DAYS)
     Route: 058
  4. ACYCLOVIR [ACICLOVIR] [Concomitant]
     Active Substance: ACYCLOVIR
     Dosage: UNK
  5. PENTOSTATIN. [Suspect]
     Active Substance: PENTOSTATIN
     Indication: CHRONIC LYMPHOCYTIC LEUKAEMIA
     Dosage: 4 MILLIGRAM/SQ. METER, Q3WK
     Route: 042
  6. BACTRIM DS [Concomitant]
     Active Substance: SULFAMETHOXAZOLE\TRIMETHOPRIM
     Dosage: UNK
  7. RITUXIMAB. [Suspect]
     Active Substance: RITUXIMAB
     Indication: CHRONIC LYMPHOCYTIC LEUKAEMIA
     Dosage: UNK UNK, Q3WK (100 MG ON DAY 1, FOLLOWED BY 375 MG/M 2 ON DAYS)
     Route: 065
  8. PEGFILGRASTIM [Suspect]
     Active Substance: PEGFILGRASTIM
     Indication: PRODUCT USED FOR UNKNOWN INDICATION
     Dosage: 6 MILLIGRAM/SQ. METER, Q3WK
     Route: 058

REACTIONS (23)
  - Tumour lysis syndrome [Unknown]
  - Lymphopenia [Unknown]
  - Thrombocytopenia [Unknown]
  - Sepsis [Fatal]
  - Pneumonia [Fatal]
  - Disease progression [Unknown]
  - Adverse event [Unknown]
  - Respiratory disorder [Fatal]
  - Diarrhoea [Unknown]
  - Vomiting [Unknown]
  - Febrile neutropenia [Unknown]
  - Myocardial infarction [Unknown]
  - Acute respiratory distress syndrome [Fatal]
  - Nausea [Unknown]
  - Fatigue [Unknown]
  - Multiple organ dysfunction syndrome [Fatal]
  - Anaemia [Unknown]
  - Hyponatraemia [Unknown]
  - Death [Fatal]
  - Pneumonitis [Fatal]
  - Neutropenia [Unknown]
  - Platelet disorder [Unknown]
  - Renal failure [Unknown]
